FAERS Safety Report 17210450 (Version 2)
Quarter: 2022Q2

REPORT INFORMATION
  Report Type: Other
  Country: US (occurrence: None)
  Receive Date: 20191227
  Receipt Date: 20220405
  Transmission Date: 20220721
  Serious: Yes (Other)
  Sender: FDA-Public Use
  Company Number: US-ROCHE-2483155

PATIENT
  Sex: Male

DRUGS (17)
  1. VALCYTE [Suspect]
     Active Substance: VALGANCICLOVIR HYDROCHLORIDE
     Indication: Liver transplant
     Dosage: 2 TABLET BID
     Route: 048
  2. VALCYTE [Suspect]
     Active Substance: VALGANCICLOVIR HYDROCHLORIDE
     Route: 048
  3. ALOGLIPTIN BENZOATE [Concomitant]
     Active Substance: ALOGLIPTIN BENZOATE
     Route: 048
  4. ASPIRIN [Concomitant]
     Active Substance: ASPIRIN
     Route: 048
  5. NEORAL [Concomitant]
     Active Substance: CYCLOSPORINE
     Indication: Liver transplant
     Route: 048
  6. NEORAL [Concomitant]
     Active Substance: CYCLOSPORINE
     Route: 048
  7. VITAMIN D2 [Concomitant]
     Active Substance: ERGOCALCIFEROL
     Dosage: 50000 UNIT (1 CAPSULE) EVERY MONDAY
     Route: 048
  8. ZORTRESS [Concomitant]
     Active Substance: EVEROLIMUS
     Dosage: 2 TABLET EVERY 12 HOURS. TO BEGIN 4TH WK IN OCT 2018
     Route: 048
  9. LASIX [Concomitant]
     Active Substance: FUROSEMIDE
     Route: 048
  10. NOVOLOG [Concomitant]
     Active Substance: INSULIN ASPART
     Dosage: 100 UNIT/ML (INJECT 8-15 UNIT UNDER THE SKIN BEFORE MEAL)
  11. LEVEMIR [Concomitant]
     Active Substance: INSULIN DETEMIR
     Dosage: 100 UNIT/ML (INJECT 30 UNITS UNDER THE SKIN DAILY)
  12. PROTONIX [Concomitant]
     Active Substance: PANTOPRAZOLE SODIUM
     Route: 048
  13. PROCARDIA XL [Concomitant]
     Active Substance: NIFEDIPINE
     Dosage: 2 TABLET DAILY
     Route: 048
  14. CRESTOR [Concomitant]
     Active Substance: ROSUVASTATIN CALCIUM
     Dosage: AT BEDTIME
     Route: 048
  15. DOCONEXENT\ICOSAPENT [Concomitant]
     Active Substance: DOCONEXENT\ICOSAPENT
     Dosage: 600 MG-216 MG-324 MG-1200 MG (1 TABLET), TAKE 2 TABLET BY MOUTH DAILY, DELAYED RELEASE (DR/EC)
  16. ZOLOFT [Concomitant]
     Active Substance: SERTRALINE HYDROCHLORIDE
     Route: 048
  17. FLOMAX [Concomitant]
     Active Substance: TAMSULOSIN HYDROCHLORIDE
     Route: 048

REACTIONS (3)
  - Hepatic infection [Unknown]
  - Sepsis [Unknown]
  - Off label use [Unknown]
